FAERS Safety Report 19830379 (Version 1)
Quarter: 2021Q3

REPORT INFORMATION
  Report Type: Spontaneous
  Country: US (occurrence: US)
  Receive Date: 20210915
  Receipt Date: 20210915
  Transmission Date: 20211014
  Serious: Yes (Other)
  Sender: FDA-Public Use
  Company Number: US-STRIDES ARCOLAB LIMITED-2020SP016669

PATIENT
  Age: 21 Year
  Sex: Female

DRUGS (1)
  1. TACROLIMUS. [Suspect]
     Active Substance: TACROLIMUS
     Indication: CHRONIC GASTRITIS
     Dosage: UNK
     Route: 060

REACTIONS (2)
  - Off label use [Unknown]
  - Neurotoxicity [Recovered/Resolved]
